FAERS Safety Report 4330574-0 (Version None)
Quarter: 2004Q1

REPORT INFORMATION
  Report Type: 
  Country: None (occurrence: None)
  Receive Date: 20040329
  Receipt Date: 20040309
  Transmission Date: 20041129
  Serious: Yes (Other)
  Sender: FDA-Public Use
  Company Number: 200401443

PATIENT
  Sex: Female

DRUGS (2)
  1. RESTASIS [Suspect]
     Indication: KERATOCONJUNCTIVITIS SICCA
     Dosage: 2 DROP BID EYE
     Route: 047
  2. ARTIFICAL TEARS [Concomitant]

REACTIONS (5)
  - ACTIVITIES OF DAILY LIVING IMPAIRED [None]
  - EYE DISORDER [None]
  - IMPAIRED DRIVING ABILITY [None]
  - PEMPHIGOID [None]
  - VISUAL ACUITY REDUCED [None]
